FAERS Safety Report 15851449 (Version 3)
Quarter: 2025Q3

REPORT INFORMATION
  Report Type: Spontaneous
  Country: EU (occurrence: EU)
  Receive Date: 20190122
  Receipt Date: 20250818
  Transmission Date: 20251021
  Serious: Yes (Hospitalization, Other)
  Sender: AUROBINDO
  Company Number: EU-AUROBINDO-AUR-APL-2019-002321

PATIENT
  Age: 10 Year
  Sex: Male

DRUGS (1)
  1. AMOXICILLIN\CLAVULANIC ACID [Suspect]
     Active Substance: AMOXICILLIN\CLAVULANIC ACID
     Indication: Streptococcal infection
     Route: 065

REACTIONS (11)
  - Encephalitis viral [Recovering/Resolving]
  - Drug ineffective [Unknown]
  - Psychomotor retardation [Unknown]
  - Clumsiness [Unknown]
  - Muscular weakness [Unknown]
  - Dysdiadochokinesis [Unknown]
  - Abnormal behaviour [Unknown]
  - Somnolence [Unknown]
  - Pyrexia [Unknown]
  - Meningitis [Unknown]
  - Gait disturbance [Unknown]
